FAERS Safety Report 23873174 (Version 1)
Quarter: 2024Q2

REPORT INFORMATION
  Report Type: Spontaneous
  Country: FR (occurrence: FR)
  Receive Date: 20240520
  Receipt Date: 20240520
  Transmission Date: 20240716
  Serious: Yes (Hospitalization)
  Sender: FDA-Public Use
  Company Number: None

PATIENT
  Age: 68 Year
  Sex: Female
  Weight: 65 kg

DRUGS (17)
  1. CARBOPLATIN [Suspect]
     Active Substance: CARBOPLATIN
     Indication: Lung adenocarcinoma
     Dosage: C3 (5 AUC) - CREATININE 90 MCMOL/L
     Dates: start: 20240408, end: 20240408
  2. PEMETREXED [Suspect]
     Active Substance: PEMETREXED
     Indication: Lung adenocarcinoma
     Dosage: C2
     Dates: start: 20240318, end: 20240318
  3. PEMBROLIZUMAB [Suspect]
     Active Substance: PEMBROLIZUMAB
     Indication: Lung adenocarcinoma
     Dosage: C3
     Dates: start: 20240408, end: 20240408
  4. VITAMIN B12 [Concomitant]
     Active Substance: CYANOCOBALAMIN
  5. FOLIC ACID [Concomitant]
     Active Substance: FOLIC ACID
  6. PREDNISONE [Concomitant]
     Active Substance: PREDNISONE
  7. EMEND [Concomitant]
     Active Substance: APREPITANT
  8. DOLIPRANE [Concomitant]
     Active Substance: ACETAMINOPHEN
  9. RACECADOTRIL [Concomitant]
     Active Substance: RACECADOTRIL
  10. ONDANSETRON [Concomitant]
     Active Substance: ONDANSETRON
  11. PRIMPERAN [Concomitant]
     Active Substance: METOCLOPRAMIDE HYDROCHLORIDE
  12. CARBOPLATIN [Suspect]
     Active Substance: CARBOPLATIN
     Indication: Lung adenocarcinoma
     Dosage: C2 (5 AUC) - CREATININE 55 MCMOL/L
     Dates: start: 20240318, end: 20240318
  13. CARBOPLATIN [Suspect]
     Active Substance: CARBOPLATIN
     Indication: Lung adenocarcinoma
     Dosage: C1 (5 AUC) - CREATININE 55 MCMOL/L
     Dates: start: 20240226, end: 20240226
  14. PEMETREXED [Suspect]
     Active Substance: PEMETREXED
     Indication: Lung adenocarcinoma
     Dosage: C3
     Dates: start: 20240408, end: 20240408
  15. PEMETREXED [Suspect]
     Active Substance: PEMETREXED
     Indication: Lung adenocarcinoma
     Dosage: C1
     Dates: start: 20240226, end: 20240226
  16. PEMBROLIZUMAB [Suspect]
     Active Substance: PEMBROLIZUMAB
     Indication: Lung adenocarcinoma
     Dosage: C1
     Dates: start: 20240226, end: 20240226
  17. PEMBROLIZUMAB [Suspect]
     Active Substance: PEMBROLIZUMAB
     Indication: Lung adenocarcinoma
     Dosage: C2
     Dates: start: 20240318, end: 20240318

REACTIONS (3)
  - Hepatic cytolysis [Recovering/Resolving]
  - Eosinophilia [Recovered/Resolved]
  - Rash maculo-papular [Recovered/Resolved]

NARRATIVE: CASE EVENT DATE: 20240409
